FAERS Safety Report 12478870 (Version 1)
Quarter: 2016Q2

REPORT INFORMATION
  Report Type: Other
  Country: US (occurrence: US)
  Receive Date: 20160620
  Receipt Date: 20160620
  Transmission Date: 20160815
  Serious: No
  Sender: FDA-Public Use
  Company Number: US-JUBILANT GENERICS LIMITED-1053995

PATIENT
  Age: 64 Year
  Sex: Female
  Weight: 56.7 kg

DRUGS (9)
  1. LYSINE [Concomitant]
     Active Substance: LYSINE
  2. LOVASTATIN. [Concomitant]
     Active Substance: LOVASTATIN
  3. VITAMIN B12 [Concomitant]
     Active Substance: CYANOCOBALAMIN
  4. POTASSIUM [Concomitant]
     Active Substance: POTASSIUM
  5. OMEGA 3-FISH OIL [Concomitant]
  6. VALACYCLOVIR [Suspect]
     Active Substance: VALACYCLOVIR HYDROCHLORIDE
  7. ^RE-ENFORCER^ [Concomitant]
  8. LISINOPRIL. [Concomitant]
     Active Substance: LISINOPRIL
  9. CALCIUM [Concomitant]
     Active Substance: CALCIUM

REACTIONS (1)
  - Drug ineffective [Unknown]

NARRATIVE: CASE EVENT DATE: 20151125
